FAERS Safety Report 6483028-X (Version None)
Quarter: 2009Q4

REPORT INFORMATION
  Report Type: 
  Country: None (occurrence: None)
  Receive Date: 20091209
  Receipt Date: 20091101
  Transmission Date: 20100525
  Serious: No
  Sender: FDA-Public Use
  Company Number: US-AMGEN-KDL372346

PATIENT
  Sex: Male

DRUGS (2)
  1. ENBREL [Suspect]
     Indication: PSORIASIS
     Route: 058
     Dates: start: 20050601
  2. ENBREL [Suspect]
     Indication: PSORIATIC ARTHROPATHY

REACTIONS (7)
  - ALOPECIA [None]
  - BRONCHITIS [None]
  - NASOPHARYNGITIS [None]
  - PSORIASIS [None]
  - PSORIATIC ARTHROPATHY [None]
  - UPPER RESPIRATORY TRACT INFECTION [None]
  - WALKING AID USER [None]
